FAERS Safety Report 14038647 (Version 6)
Quarter: 2020Q3

REPORT INFORMATION
  Report Type: Spontaneous
  Country: CA (occurrence: CA)
  Receive Date: 20171004
  Receipt Date: 20200113
  Transmission Date: 20201105
  Serious: Yes (Death, Hospitalization)
  Sender: FDA-Public Use
  Company Number: CA-CELGENEUS-CAN-20170908695

PATIENT
  Age: 65 Year
  Sex: Male

DRUGS (18)
  1. GEMCITABINE. [Suspect]
     Active Substance: GEMCITABINE
     Indication: PANCREATIC CARCINOMA
     Route: 065
     Dates: start: 20080115
  2. ACLIDINIUM BROMIDE. [Concomitant]
     Active Substance: ACLIDINIUM BROMIDE
     Indication: PNEUMONITIS
     Route: 065
     Dates: start: 20170822, end: 20170923
  3. DECADRON [Concomitant]
     Active Substance: DEXAMETHASONE
     Indication: PROPHYLAXIS OF NAUSEA AND VOMITING
     Route: 065
     Dates: start: 20170913, end: 20170913
  4. INSULIN [Concomitant]
     Active Substance: INSULIN NOS
     Indication: DIABETES MELLITUS
     Route: 065
     Dates: start: 20160831, end: 20170923
  5. PREDNISONE. [Suspect]
     Active Substance: PREDNISONE
     Indication: PNEUMONITIS
     Dosage: 980 MILLIGRAM
     Route: 041
     Dates: start: 20170621
  6. PREGABALIN. [Concomitant]
     Active Substance: PREGABALIN
     Indication: PERIPHERAL SENSORY NEUROPATHY
     Route: 065
     Dates: start: 20080115
  7. IBUPROFEN. [Concomitant]
     Active Substance: IBUPROFEN
     Indication: BACK PAIN
     Route: 065
     Dates: start: 20170612, end: 20170920
  8. GEMCITABINE. [Suspect]
     Active Substance: GEMCITABINE
     Dosage: 1950 MILLIGRAM
     Route: 041
     Dates: start: 20170621, end: 20170913
  9. HYDROMORPHONE HYDROCHLORIDE. [Concomitant]
     Active Substance: HYDROMORPHONE HYDROCHLORIDE
     Indication: BACK PAIN
     Route: 065
     Dates: start: 20170911, end: 20170920
  10. MEDI4736 (DURVALUMAB) [Suspect]
     Active Substance: DURVALUMAB
     Indication: PANCREATIC CARCINOMA
     Dosage: 1500 MILLIGRAM
     Route: 041
     Dates: start: 20170621, end: 20170828
  11. TREMELIMUMAB. [Suspect]
     Active Substance: TREMELIMUMAB
     Indication: PANCREATIC CARCINOMA
     Dosage: 75 MILLIGRAM
     Route: 041
     Dates: start: 20170621, end: 20170828
  12. PREDNISONE. [Suspect]
     Active Substance: PREDNISONE
     Route: 065
     Dates: start: 20170828, end: 20170920
  13. PANCREATIN [Concomitant]
     Active Substance: PANCRELIPASE
     Indication: PANCREATIC ENZYME ABNORMALITY
     Route: 065
     Dates: start: 20160831, end: 20170923
  14. ABRAXANE [Suspect]
     Active Substance: PACLITAXEL
     Indication: PANCREATIC CARCINOMA
     Dosage: 245 MILLIGRAM
     Route: 041
     Dates: start: 20170621, end: 20170913
  15. PREGABALIN. [Concomitant]
     Active Substance: PREGABALIN
     Route: 065
     Dates: start: 20160831, end: 20170923
  16. GLUCAGON. [Concomitant]
     Active Substance: GLUCAGON
     Indication: DIABETES MELLITUS
     Route: 065
     Dates: start: 20160831, end: 20170923
  17. SALBUTAMOL [Concomitant]
     Active Substance: ALBUTEROL
     Indication: PNEUMONITIS
     Route: 065
     Dates: start: 20170822, end: 20170923
  18. FLUTICASONE PROPIONATE. [Concomitant]
     Active Substance: FLUTICASONE PROPIONATE
     Indication: PNEUMONITIS
     Route: 065
     Dates: start: 20170822, end: 20170923

REACTIONS (1)
  - Gastrointestinal perforation [Fatal]

NARRATIVE: CASE EVENT DATE: 20170920
